FAERS Safety Report 13574881 (Version 1)
Quarter: 2017Q2

REPORT INFORMATION
  Report Type: Spontaneous
  Country: NL (occurrence: NL)
  Receive Date: 20170523
  Receipt Date: 20170523
  Transmission Date: 20170830
  Serious: Yes (Other)
  Sender: FDA-Public Use
  Company Number: NL-IMPAX LABORATORIES, INC-2017-IPXL-01429

PATIENT
  Age: 78 Year
  Sex: Female

DRUGS (3)
  1. HALOPERIDOL. [Concomitant]
     Active Substance: HALOPERIDOL
     Indication: MANIA
     Dosage: UNK
     Route: 065
  2. DIVALPROEX SODIUM ER [Suspect]
     Active Substance: DIVALPROEX SODIUM
     Indication: MANIA
     Dosage: 2100 MG, DAILY
     Route: 065
  3. DIVALPROEX SODIUM ER [Suspect]
     Active Substance: DIVALPROEX SODIUM
     Dosage: 600 MG, DAILY
     Route: 065

REACTIONS (5)
  - Toxicity to various agents [Recovered/Resolved]
  - Mental status changes [Recovering/Resolving]
  - Fall [Recovered/Resolved]
  - Vertigo [Recovered/Resolved]
  - Sedation [Recovered/Resolved]
